FAERS Safety Report 10601552 (Version 1)
Quarter: 2014Q4

REPORT INFORMATION
  Report Type: Spontaneous
  Country: US (occurrence: None)
  Receive Date: 20141120
  Receipt Date: 20141120
  Transmission Date: 20150529
  Serious: Yes (Hospitalization)
  Sender: FDA-Public Use
  Company Number: INT_00522_2014

PATIENT
  Age: 62 Year
  Sex: Female

DRUGS (2)
  1. CARBOPLATIN. [Suspect]
     Active Substance: CARBOPLATIN
     Indication: OVARIAN CLEAR CELL CARCINOMA
     Dosage: (AT LEAST 6 CYCLES)
  2. TAXOL [Suspect]
     Active Substance: PACLITAXEL
     Indication: OVARIAN CLEAR CELL CARCINOMA
     Dosage: (AT LEAST 6 CYCLES)

REACTIONS (7)
  - Neuropathy peripheral [None]
  - Renal infarct [None]
  - Deep vein thrombosis [None]
  - Pulmonary embolism [None]
  - Cardiac valve vegetation [None]
  - Embolic stroke [None]
  - Hemianopia homonymous [None]
